FAERS Safety Report 23696649 (Version 1)
Quarter: 2024Q2

REPORT INFORMATION
  Report Type: Spontaneous
  Country: US (occurrence: None)
  Receive Date: 20240401
  Receipt Date: 20240401
  Transmission Date: 20240716
  Serious: Yes (Other)
  Sender: FDA-Public Use
  Company Number: None

PATIENT
  Age: 29 Year
  Sex: Male
  Weight: 74.25 kg

DRUGS (1)
  1. GAMUNEX-C [Suspect]
     Active Substance: HUMAN IMMUNOGLOBULIN G
     Indication: Chronic inflammatory demyelinating polyradiculoneuropathy
     Dosage: 70 G GRAMS OVER 2 DAYS Q3WEEK INTRVENOUS
     Route: 042
     Dates: start: 20240313

REACTIONS (4)
  - Headache [None]
  - Nausea [None]
  - Decreased appetite [None]
  - Hypersomnia [None]

NARRATIVE: CASE EVENT DATE: 20240330
